FAERS Safety Report 16552625 (Version 1)
Quarter: 2019Q3

REPORT INFORMATION
  Report Type: Spontaneous
  Country: US (occurrence: US)
  Receive Date: 20190710
  Receipt Date: 20190710
  Transmission Date: 20191004
  Serious: Yes (Hospitalization)
  Sender: FDA-Public Use
  Company Number: US-PFIZER INC-2019293293

PATIENT
  Age: 29 Year
  Sex: Female
  Weight: 56.69 kg

DRUGS (4)
  1. ABILIFY [Suspect]
     Active Substance: ARIPIPRAZOLE
     Indication: SCHIZOAFFECTIVE DISORDER
     Dosage: UNK
     Dates: start: 2005, end: 2011
  2. VRAYLAR [Suspect]
     Active Substance: CARIPRAZINE
  3. GEODON [Suspect]
     Active Substance: ZIPRASIDONE HYDROCHLORIDE\ZIPRASIDONE MESYLATE
     Indication: SCHIZOAFFECTIVE DISORDER
     Dosage: UNK
  4. ROGAINE [Concomitant]
     Active Substance: MINOXIDIL
     Indication: ALOPECIA

REACTIONS (23)
  - Expired product administered [Unknown]
  - Drug ineffective for unapproved indication [Unknown]
  - Off label use [Unknown]
  - Alopecia [Not Recovered/Not Resolved]
  - Behaviour disorder [Unknown]
  - Blister [Not Recovered/Not Resolved]
  - Feeling abnormal [Unknown]
  - Compulsive shopping [Not Recovered/Not Resolved]
  - Vision blurred [Unknown]
  - Blood testosterone increased [Unknown]
  - Tooth disorder [Unknown]
  - Polycystic ovaries [Recovered/Resolved]
  - Peripheral swelling [Unknown]
  - Pain in extremity [Not Recovered/Not Resolved]
  - Constipation [Not Recovered/Not Resolved]
  - Liver disorder [Unknown]
  - Anaemia [Not Recovered/Not Resolved]
  - Tremor [Recovered/Resolved]
  - Condition aggravated [Not Recovered/Not Resolved]
  - Weight increased [Not Recovered/Not Resolved]
  - Periodontal disease [Not Recovered/Not Resolved]
  - Limb discomfort [Unknown]
  - Binge eating [Not Recovered/Not Resolved]

NARRATIVE: CASE EVENT DATE: 2005
